FAERS Safety Report 9889019 (Version 1)
Quarter: 2014Q1

REPORT INFORMATION
  Report Type: Spontaneous
  Country: US (occurrence: None)
  Receive Date: 20140210
  Receipt Date: 20140210
  Transmission Date: 20141002
  Serious: Yes (Hospitalization, Disabling)
  Sender: FDA-Public Use
  Company Number: None

PATIENT
  Age: 57 Year
  Sex: Male
  Weight: 74.84 kg

DRUGS (1)
  1. ANDROGEL [Suspect]
     Indication: BLOOD TESTOSTERONE DECREASED
     Dosage: ONCE DAILY APPLIED TO A SURFACE, USUALLY THE SKIN
     Dates: start: 20080101, end: 20101012

REACTIONS (3)
  - Sarcoidosis [None]
  - Pulmonary embolism [None]
  - Deep vein thrombosis [None]
